FAERS Safety Report 5274310-2 (Version None)
Quarter: 2007Q1

REPORT INFORMATION
  Report Type: 
  Country: None (occurrence: None)
  Receive Date: 20070323
  Receipt Date: 20070316
  Transmission Date: 20070707
  Serious: Yes (Other)
  Sender: FDA-Public Use
  Company Number: PT-AMGEN-UK215402

PATIENT
  Sex: Male
  Weight: 83 kg

DRUGS (8)
  1. MIMPARA [Suspect]
     Route: 048
     Dates: start: 20070115
  2. ADALAT [Concomitant]
     Route: 048
     Dates: start: 20050701
  3. LOSARTAN POSTASSIUM [Concomitant]
     Route: 048
     Dates: start: 20051101
  4. ALLOPURINOL [Concomitant]
     Route: 048
     Dates: start: 20050801
  5. SEVELAMER HCL [Concomitant]
     Route: 048
     Dates: start: 20050701
  6. CALCIUM [Concomitant]
     Route: 048
     Dates: start: 20070101
  7. NEORECORMON [Concomitant]
     Route: 058
     Dates: start: 20050701
  8. TRAMADOL HCL [Concomitant]
     Dates: start: 20070101

REACTIONS (2)
  - LEUKOPENIA [None]
  - THROMBOCYTOPENIA [None]
